FAERS Safety Report 6785516-5 (Version None)
Quarter: 2010Q2

REPORT INFORMATION
  Report Type: 
  Country: None (occurrence: None)
  Receive Date: 20100621
  Receipt Date: 20100621
  Transmission Date: 20101027
  Serious: Yes (Hospitalization)
  Sender: FDA-Public Use
  Company Number: None

PATIENT
  Age: 90 Year
  Weight: 41 kg

DRUGS (9)
  1. OXYCONTIN [Suspect]
     Indication: PAIN
     Dosage: 40 MG / 20 MG QAM 1QPM PO/PO
     Route: 048
  2. TRAMADOL HCL [Suspect]
     Indication: PAIN
     Dosage: ? PM PO
     Route: 048
  3. OSTEO [Concomitant]
  4. PUMPKIN SEEDS [Concomitant]
  5. AMLODIPINE/BENZEPRIL [Concomitant]
  6. VIT D [Concomitant]
  7. VIT B12 [Concomitant]
  8. ASCORBIC ACID [Concomitant]
  9. CALCIUM + MAG CITRATE [Concomitant]

REACTIONS (3)
  - HYPERSOMNIA [None]
  - MENTAL STATUS CHANGES [None]
  - SOMNOLENCE [None]
